FAERS Safety Report 22087247 (Version 1)
Quarter: 2023Q1

REPORT INFORMATION
  Report Type: Spontaneous
  Country: IN (occurrence: IN)
  Receive Date: 20230313
  Receipt Date: 20230313
  Transmission Date: 20230417
  Serious: Yes (Other)
  Sender: FDA-Public Use
  Company Number: IN-drreddys-LIT/IND/23/0162123

PATIENT
  Age: 65 Year
  Sex: Female

DRUGS (1)
  1. ZOLEDRONIC ACID [Suspect]
     Active Substance: ZOLEDRONIC ACID
     Indication: Aesthesioneuroblastoma

REACTIONS (2)
  - Metastases to bone [Unknown]
  - Drug ineffective for unapproved indication [Unknown]
